FAERS Safety Report 5820122-8 (Version None)
Quarter: 2008Q3

REPORT INFORMATION
  Report Type: 
  Country: None (occurrence: None)
  Receive Date: 20080724
  Receipt Date: 20080721
  Transmission Date: 20090109
  Serious: Yes (Life-Threatening, Hospitalization)
  Sender: FDA-Public Use
  Company Number: US-BAYER-200827782NA

PATIENT
  Age: 83 Year
  Sex: Female
  Weight: 78 kg

DRUGS (6)
  1. SORAFENIB [Suspect]
     Indication: RENAL CELL CARCINOMA
     Dosage: TOTAL DAILY DOSE: 800 MG  UNIT DOSE: 200 MG
     Route: 048
     Dates: start: 20080626, end: 20080701
  2. LEVOTHYROXINE SODIUM [Concomitant]
     Indication: HYPOTHYROIDISM
     Dosage: TOTAL DAILY DOSE: 0.075 MG
     Route: 048
     Dates: start: 20060901
  3. LEXAPRO [Concomitant]
     Indication: DEPRESSION
     Dosage: TOTAL DAILY DOSE: 5 MG
     Route: 048
     Dates: start: 20060901
  4. VITAMIN B6 [Concomitant]
     Indication: ROUTINE HEALTH MAINTENANCE
     Dosage: TOTAL DAILY DOSE: 50 MG
     Route: 048
     Dates: start: 20080501
  5. VITAMIN B-12 [Concomitant]
     Indication: ROUTINE HEALTH MAINTENANCE
     Dosage: TOTAL DAILY DOSE: 100 MG
     Route: 048
     Dates: start: 20080501
  6. IBUPROFEN TABLETS [Concomitant]
     Indication: PAIN
     Dosage: UNIT DOSE: 400 MG
     Route: 048
     Dates: start: 20060901

REACTIONS (6)
  - BRONCHOSCOPY ABNORMAL [None]
  - ERYTHEMA MULTIFORME [None]
  - FATIGUE [None]
  - HAEMODIALYSIS [None]
  - PAIN [None]
  - RENAL FAILURE ACUTE [None]
